FAERS Safety Report 9458899 (Version 1)
Quarter: 2013Q3

REPORT INFORMATION
  Report Type: Spontaneous
  Country: FR (occurrence: FR)
  Receive Date: 20130814
  Receipt Date: 20130814
  Transmission Date: 20140515
  Serious: Yes (Hospitalization)
  Sender: FDA-Public Use
  Company Number: FR-GLAXOSMITHKLINE-B0913843A

PATIENT
  Age: 61 Year
  Sex: Female

DRUGS (5)
  1. AZANTAC [Suspect]
     Indication: PREMEDICATION
     Dosage: 50MG SINGLE DOSE
     Route: 042
     Dates: start: 20130708, end: 20130708
  2. METHYLPREDNISOLONE [Suspect]
     Indication: PREMEDICATION
     Dosage: 60MG SINGLE DOSE
     Route: 042
     Dates: start: 20130708, end: 20130708
  3. POLARAMINE [Suspect]
     Indication: PREMEDICATION
     Route: 042
     Dates: start: 20130708, end: 20130708
  4. TAXOL [Concomitant]
     Indication: ADENOCARCINOMA
  5. AVASTIN (BEVACIZUMAB) [Concomitant]
     Indication: ADENOCARCINOMA

REACTIONS (1)
  - Infusion site reaction [Recovered/Resolved]
